FAERS Safety Report 5188057-4 (Version None)
Quarter: 2006Q4

REPORT INFORMATION
  Report Type: 
  Country: None (occurrence: None)
  Receive Date: 20061214
  Receipt Date: 20061214
  Transmission Date: 20070319
  Serious: Yes (Death)
  Sender: FDA-Public Use
  Company Number: None

PATIENT
  Sex: Male
  Weight: 14 kg

DRUGS (2)
  1. ISONIAZID [Suspect]
     Indication: ANTIBIOTIC PROPHYLAXIS
     Dosage: 150MG PO QD SEVERAL MONTHS
     Route: 048
  2. ISONIAZID [Suspect]
     Indication: TUBERCULOSIS SKIN TEST POSITIVE
     Dosage: 150MG PO QD SEVERAL MONTHS
     Route: 048

REACTIONS (6)
  - BRAIN HERNIATION [None]
  - ENCEPHALITIS [None]
  - PUPIL FIXED [None]
  - PYREXIA [None]
  - STATUS EPILEPTICUS [None]
  - UPPER RESPIRATORY TRACT INFECTION [None]
